FAERS Safety Report 15794296 (Version 1)
Quarter: 2019Q1

REPORT INFORMATION
  Report Type: Spontaneous
  Country: US (occurrence: US)
  Receive Date: 20190106
  Receipt Date: 20190106
  Transmission Date: 20190417
  Serious: Yes (Disabling, Other)
  Sender: FDA-Public Use
  Company Number: None

PATIENT
  Age: 47 Year
  Sex: Female
  Weight: 69.3 kg

DRUGS (4)
  1. CALCIUM [Concomitant]
     Active Substance: CALCIUM
  2. LOSARTAN. [Concomitant]
     Active Substance: LOSARTAN
  3. FOSAMAX [Suspect]
     Active Substance: ALENDRONATE SODIUM
     Indication: BONE DENSITY DECREASED
     Dosage: ?          QUANTITY:1 TABLET(S);OTHER FREQUENCY:1 TABLET PER WEEK;?
     Route: 048
     Dates: start: 20180629, end: 20181123
  4. MULTIVITAMIN [Concomitant]
     Active Substance: VITAMINS

REACTIONS (2)
  - Toothache [None]
  - Pain in jaw [None]

NARRATIVE: CASE EVENT DATE: 20180716
